FAERS Safety Report 4479454-0 (Version None)
Quarter: 2004Q4

REPORT INFORMATION
  Report Type: 
  Country: None (occurrence: None)
  Receive Date: 20041020
  Receipt Date: 20041008
  Transmission Date: 20050328
  Serious: Yes (Hospitalization)
  Sender: FDA-Public Use
  Company Number: FRWYE099008OCT04

PATIENT
  Age: 39 Year
  Sex: Female

DRUGS (2)
  1. ENBREL [Suspect]
     Indication: JUVENILE ARTHRITIS
     Dosage: UNKNOWN
     Route: 058
     Dates: start: 20020101, end: 20020101
  2. METHOTREXATE [Suspect]
     Dosage: UNKNOWN
     Route: 048

REACTIONS (2)
  - KNEE ARTHROPLASTY [None]
  - SEPTIC ARTHRITIS STAPHYLOCOCCAL [None]
